FAERS Safety Report 10016850 (Version 1)
Quarter: 2014Q1

REPORT INFORMATION
  Report Type: Spontaneous
  Country: GR (occurrence: GR)
  Receive Date: 20140318
  Receipt Date: 20140318
  Transmission Date: 20141002
  Serious: Yes (Other)
  Sender: FDA-Public Use
  Company Number: GR-ROCHE-1363152

PATIENT
  Age: 78 Year
  Sex: Female

DRUGS (4)
  1. LUCENTIS [Suspect]
     Indication: CHOROIDAL NEOVASCULARISATION
     Dosage: 8 INTRAVITREAL INJECTION OF RANIBIZUMAB ALONG WITH 1 INTRAVITREAL INJECTION OF BEVACIZUMAB
     Route: 050
     Dates: start: 2008, end: 2008
  2. LUCENTIS [Suspect]
     Dosage: 8 INTRAVITREAL INJECTION OF RANIBIZUMAB ALONG WITH 1 INTRAVITREAL INJECTION OF BEVACIZUMAB
     Route: 050
     Dates: start: 2012, end: 2012
  3. LUCENTIS [Suspect]
     Dosage: 8 INTRAVITREAL INJECTION OF RANIBIZUMAB ALONG WITH 1 INTRAVITREAL INJECTION OF BEVACIZUMAB (THE LAST
     Route: 050
     Dates: start: 201205, end: 201205
  4. AVASTIN [Suspect]
     Indication: CHOROIDAL NEOVASCULARISATION
     Dosage: 1 INTRAVITREAL INJECTION OF BEVACIZUMAB ALONG WITH 8 INTRAVITREAL INJECTION OF RANIBIZUMAB
     Route: 065

REACTIONS (1)
  - Visual field defect [Unknown]
